FAERS Safety Report 5057708-7 (Version None)
Quarter: 2006Q3

REPORT INFORMATION
  Report Type: 
  Country: None (occurrence: None)
  Receive Date: 20060721
  Receipt Date: 20060510
  Transmission Date: 20061208
  Serious: Yes (Hospitalization)
  Sender: FDA-Public Use
  Company Number: IT-ROCHE-447169

PATIENT
  Age: 57 Year
  Sex: Male

DRUGS (7)
  1. MYCOPHENOLATE MOFETIL [Suspect]
     Route: 048
     Dates: start: 20060125
  2. FK506 [Suspect]
     Route: 048
     Dates: start: 20060125
  3. FK506 [Suspect]
     Route: 048
  4. ALBUMIN [Concomitant]
  5. BACTRIM [Concomitant]
  6. CIPROFLOXACIN [Concomitant]
  7. INSULIN [Concomitant]

REACTIONS (5)
  - BILE DUCT STENOSIS [None]
  - DISEASE RECURRENCE [None]
  - DRUG LEVEL INCREASED [None]
  - HEPATITIS C [None]
  - RENAL FAILURE [None]
